FAERS Safety Report 5031582-7 (Version None)
Quarter: 2006Q2

REPORT INFORMATION
  Report Type: 
  Country: None (occurrence: None)
  Receive Date: 20060621
  Receipt Date: 20060609
  Transmission Date: 20061013
  Serious: Yes (Hospitalization)
  Sender: FDA-Public Use
  Company Number: SE-GLAXOSMITHKLINE-B0427000A

PATIENT
  Age: 18 Year
  Sex: Female

DRUGS (2)
  1. ACETAMINOPHEN [Suspect]
     Dosage: 500MG SEE DOSAGE TEXT
     Route: 048
     Dates: start: 20060408, end: 20060408
  2. ACETYLCYSTEINE [Suspect]
     Dosage: 10G PER DAY
     Route: 042
     Dates: start: 20060408

REACTIONS (6)
  - DRUG DISPENSING ERROR [None]
  - DRUG TOXICITY [None]
  - OVERDOSE [None]
  - PRURITUS [None]
  - RASH [None]
  - SWELLING FACE [None]
